FAERS Safety Report 4891708-2 (Version None)
Quarter: 2005Q4

REPORT INFORMATION
  Report Type: 
  Country: None (occurrence: None)
  Receive Date: 20051220
  Receipt Date: 20051021
  Transmission Date: 20060501
  Serious: Yes (Other)
  Sender: FDA-Public Use
  Company Number: 422386

PATIENT
  Sex: Female

DRUGS (2)
  1. BONIVA [Suspect]
  2. EVISTA [Concomitant]

REACTIONS (3)
  - ABDOMINAL DISCOMFORT [None]
  - DYSPEPSIA [None]
  - NAUSEA [None]
